FAERS Safety Report 17986978 (Version 1)
Quarter: 2020Q3

REPORT INFORMATION
  Report Type: Other
  Country: IT (occurrence: IT)
  Receive Date: 20200707
  Receipt Date: 20200707
  Transmission Date: 20201103
  Serious: Yes (Other)
  Sender: FDA-Public Use
  Company Number: IT-CELLTRION INC.-2020IT023910

PATIENT

DRUGS (9)
  1. VINCRISTINE [Suspect]
     Active Substance: VINCRISTINE
     Indication: NON-HODGKIN^S LYMPHOMA
     Dosage: 1 MG, CYCLIC
     Dates: start: 20191212, end: 20191212
  2. METHYLPREDNISOLONE. [Concomitant]
     Active Substance: METHYLPREDNISOLONE
  3. PARACETAMOL [Concomitant]
     Active Substance: ACETAMINOPHEN
  4. DOXORUBICIN HYDROCHLORIDE. [Suspect]
     Active Substance: DOXORUBICIN HYDROCHLORIDE
     Indication: NON-HODGKIN^S LYMPHOMA
     Dosage: 78.5 MG, CYCLIC
     Dates: start: 20191212, end: 20191212
  5. HYDROCORTISONE. [Concomitant]
     Active Substance: HYDROCORTISONE
  6. RITUXIMAB (UNKNOWN) [Suspect]
     Active Substance: RITUXIMAB
     Indication: NON-HODGKIN^S LYMPHOMA
     Dosage: 588.8 MG, CYCLIC
     Dates: start: 20191219, end: 20191219
  7. CYCLOPHOSPHAMIDE. [Suspect]
     Active Substance: CYCLOPHOSPHAMIDE
     Indication: NON-HODGKIN^S LYMPHOMA
     Dosage: 1178 MG, CYCLIC
     Dates: start: 20191212, end: 20191212
  8. TROPISETRON [Concomitant]
     Active Substance: TROPISETRON
  9. CHLORPHENAMINE [Concomitant]
     Active Substance: CHLORPHENIRAMINE MALEATE

REACTIONS (1)
  - Hypoperfusion [Recovering/Resolving]

NARRATIVE: CASE EVENT DATE: 20191219
